FAERS Safety Report 11184449 (Version 1)
Quarter: 2015Q2

REPORT INFORMATION
  Report Type: Spontaneous
  Country: US (occurrence: None)
  Receive Date: 20150611
  Receipt Date: 20150611
  Transmission Date: 20150821
  Serious: Yes (Other)
  Sender: FDA-Public Use
  Company Number: None

PATIENT
  Age: 54 Year
  Sex: Male
  Weight: 79.38 kg

DRUGS (1)
  1. PROGRAF [Suspect]
     Active Substance: TACROLIMUS\TACROLIMUS ANHYDROUS
     Indication: HEART TRANSPLANT
     Dosage: 1MG ?ORAL?6 PO TWICE A DAY
     Route: 048
     Dates: start: 20140906, end: 20150210

REACTIONS (2)
  - Cognitive disorder [None]
  - Tremor [None]

NARRATIVE: CASE EVENT DATE: 20150210
